FAERS Safety Report 10398537 (Version 2)
Quarter: 2014Q3

REPORT INFORMATION
  Report Type: Report from Study
  Country: US (occurrence: US)
  Receive Date: 20140821
  Receipt Date: 20140912
  Transmission Date: 20150326
  Serious: Yes (Hospitalization)
  Sender: FDA-Public Use
  Company Number: PHEH2014US016432

PATIENT
  Age: 79 Year
  Sex: Male
  Weight: 71.5 kg

DRUGS (2)
  1. EXJADE [Suspect]
     Active Substance: DEFERASIROX
     Indication: MYELODYSPLASTIC SYNDROME
     Dosage: UNK UKN, UNK
  2. EXJADE [Suspect]
     Active Substance: DEFERASIROX
     Dosage: 500 MG, DAILY
     Dates: end: 20140729

REACTIONS (6)
  - Mental impairment [Unknown]
  - Pneumonia [Not Recovered/Not Resolved]
  - Pyrexia [Not Recovered/Not Resolved]
  - Dementia [Unknown]
  - Gastrointestinal disorder [Unknown]
  - Serum ferritin increased [Unknown]

NARRATIVE: CASE EVENT DATE: 20140711
